FAERS Safety Report 6787794-5 (Version None)
Quarter: 2010Q2

REPORT INFORMATION
  Report Type: 
  Country: None (occurrence: None)
  Receive Date: 20100623
  Receipt Date: 20090317
  Transmission Date: 20101027
  Serious: Yes (Other)
  Sender: FDA-Public Use
  Company Number: US-PFIZER INC-2007066580

PATIENT
  Sex: Female
  Weight: 63 kg

DRUGS (10)
  1. PROVERA [Suspect]
     Indication: HORMONE REPLACEMENT THERAPY
     Route: 048
  2. PREMPRO [Suspect]
     Indication: HORMONE REPLACEMENT THERAPY
  3. ACTIVELLA [Suspect]
     Indication: HORMONE REPLACEMENT THERAPY
  4. FEMHRT [Suspect]
     Indication: HORMONE REPLACEMENT THERAPY
  5. ESTRACE [Suspect]
     Indication: HORMONE REPLACEMENT THERAPY
  6. EFFEXOR [Concomitant]
     Indication: FIBROMYALGIA
     Dosage: UNK
     Dates: start: 20030101
  7. SINGULAIR ^DIECKMANN^ [Concomitant]
     Indication: ASTHMA
     Dosage: UNK
     Dates: start: 20010101
  8. PRILOSEC [Concomitant]
     Indication: DYSPEPSIA
     Dosage: UNK
     Dates: start: 19990101, end: 20050101
  9. NEXIUM [Concomitant]
     Indication: DYSPEPSIA
     Dosage: UNK
     Dates: start: 20020101, end: 20050101
  10. ALDACTONE [Concomitant]
     Indication: BLOOD PRESSURE
     Dosage: UNK
     Dates: start: 19990101, end: 20050101

REACTIONS (1)
  - BREAST CANCER FEMALE [None]
